FAERS Safety Report 8016452-4 (Version None)
Quarter: 2011Q4

REPORT INFORMATION
  Report Type: 
  Country: None (occurrence: None)
  Receive Date: 20111230
  Receipt Date: 20111225
  Transmission Date: 20120403
  Serious: Yes (Life-Threatening, Hospitalization, Other)
  Sender: FDA-Public Use
  Company Number: RO-ABBOTT-11P-135-0868767-00

PATIENT
  Sex: Male
  Weight: 60 kg

DRUGS (11)
  1. BISOPROLOL [Concomitant]
     Indication: HYPERTENSION
     Route: 048
  2. ATORVASTATIN [Concomitant]
     Indication: PRODUCT USED FOR UNKNOWN INDICATION
  3. ZEMPLAR [Suspect]
     Indication: HYPERPARATHYROIDISM SECONDARY
     Route: 048
     Dates: start: 20110620
  4. NEOROCORMON (BETA ERYTHROPOIETIN) [Concomitant]
     Indication: NEPHROGENIC ANAEMIA
     Route: 058
     Dates: start: 20100101
  5. TELMISARTAN [Concomitant]
     Indication: HYPERTENSION
     Route: 048
     Dates: start: 20050101
  6. SIMVASTATIN [Concomitant]
     Indication: DYSLIPIDAEMIA
     Route: 048
  7. SIMVASTATIN [Concomitant]
     Indication: MYOCARDIAL ISCHAEMIA
  8. AMLODIPINA [Concomitant]
     Indication: HYPERTENSION
     Route: 048
     Dates: start: 20050101
  9. TELMISARTAN [Concomitant]
     Indication: HYPERTENSIVE CARDIOMYOPATHY
  10. BISOPROLOL [Concomitant]
     Indication: MYOCARDIAL ISCHAEMIA
  11. NITRATES [Concomitant]
     Indication: PRODUCT USED FOR UNKNOWN INDICATION

REACTIONS (4)
  - ANGINA PECTORIS [None]
  - MYOCARDIAL INFARCTION [None]
  - ASTHENIA [None]
  - ELECTROCARDIOGRAM ABNORMAL [None]
